FAERS Safety Report 15859840 (Version 1)
Quarter: 2019Q1

REPORT INFORMATION
  Report Type: Report from Study
  Country: DE (occurrence: DE)
  Receive Date: 20190123
  Receipt Date: 20190123
  Transmission Date: 20190417
  Serious: Yes (Hospitalization, Other)
  Sender: FDA-Public Use
  Company Number: PHHY2018DE200638

PATIENT
  Sex: Male
  Weight: 70 kg

DRUGS (6)
  1. FUROSEMIDE ^RATIOPHARM^ [Concomitant]
     Indication: PRODUCT USED FOR UNKNOWN INDICATION
     Dosage: 80 MG, QD
     Route: 065
     Dates: start: 2016
  2. DIGITOXIN [Concomitant]
     Active Substance: DIGITOXIN
     Indication: PRODUCT USED FOR UNKNOWN INDICATION
     Dosage: 0.07 MG, QD
     Route: 065
     Dates: start: 20160101
  3. DEKRISTOL [Concomitant]
     Active Substance: CHOLECALCIFEROL
     Indication: PRODUCT USED FOR UNKNOWN INDICATION
     Dosage: 1 DF, QW
     Route: 065
     Dates: start: 2016
  4. BISOPROLOL 1A PHARMA [Suspect]
     Active Substance: BISOPROLOL
     Indication: CARDIAC FAILURE CHRONIC
     Dosage: 10 MG, QD
     Route: 048
     Dates: start: 2016
  5. MORPHINE [Concomitant]
     Active Substance: MORPHINE
     Indication: PRODUCT USED FOR UNKNOWN INDICATION
     Dosage: 120 MG, UNK
     Route: 065
     Dates: start: 20180516
  6. ELIQUIS [Concomitant]
     Active Substance: APIXABAN
     Indication: PRODUCT USED FOR UNKNOWN INDICATION
     Dosage: 5 MG, QD
     Route: 065
     Dates: start: 2016

REACTIONS (13)
  - Fluid retention [Unknown]
  - Heart rate increased [Unknown]
  - Oedema peripheral [Unknown]
  - Cardiac disorder [Unknown]
  - Visual impairment [Unknown]
  - Cardiac failure [Unknown]
  - Pulmonary oedema [Unknown]
  - Dysphonia [Unknown]
  - Drug ineffective [Unknown]
  - Cardiac failure chronic [Unknown]
  - Fatigue [Unknown]
  - Dyspnoea [Unknown]
  - Sleep disorder [Unknown]

NARRATIVE: CASE EVENT DATE: 2016
